FAERS Safety Report 22138877 (Version 1)
Quarter: 2023Q1

REPORT INFORMATION
  Report Type: Spontaneous
  Country: CO (occurrence: CO)
  Receive Date: 20230327
  Receipt Date: 20230327
  Transmission Date: 20230418
  Serious: Yes (Hospitalization, Other)
  Sender: FDA-Public Use
  Company Number: CO-AMGEN-COLSP2022148511

PATIENT
  Age: 81 Year
  Sex: Female
  Weight: 49 kg

DRUGS (11)
  1. MVASI [Suspect]
     Active Substance: BEVACIZUMAB-AWWB
     Indication: Colon cancer
     Dosage: 281 MILLIGRAM, DAY 1 AND 15
     Route: 065
     Dates: start: 20220621
  2. MVASI [Suspect]
     Active Substance: BEVACIZUMAB-AWWB
     Dosage: UNK
     Route: 065
     Dates: start: 202212, end: 20230106
  3. OXALIPLATIN [Concomitant]
     Active Substance: OXALIPLATIN
     Indication: Colon cancer
     Dosage: 120 MILLIGRAM, DAY 1 AND 15
     Dates: start: 20220525
  4. LEUCOVORIN CALCIUM [Concomitant]
     Active Substance: LEUCOVORIN CALCIUM
     Indication: Colon cancer
     Dosage: 570 MILLIGRAM, DAY 1 AND DAY 15
     Dates: start: 20220525
  5. LEUCOVORIN CALCIUM [Concomitant]
     Active Substance: LEUCOVORIN CALCIUM
     Dosage: 600 MILLIGRAM, DAY 1 AND 15
     Dates: start: 20220526
  6. FLUOROURACIL [Concomitant]
     Active Substance: FLUOROURACIL
     Indication: Colon cancer
     Dosage: 500 MILLIGRAM, DAY 1 AND DAY 15
     Dates: start: 20220525
  7. FLUOROURACIL [Concomitant]
     Active Substance: FLUOROURACIL
     Dosage: 3400 MILLIGRAM, DAY 1 AND DAY 15
     Dates: start: 20220525
  8. FLUOROURACIL [Concomitant]
     Active Substance: FLUOROURACIL
     Dosage: 600 MILLIGRAM, DAY 1 AND 15
     Dates: start: 20220528
  9. FLUOROURACIL [Concomitant]
     Active Substance: FLUOROURACIL
     Dosage: 600 MILLIGRAM, DAY 1 AND 15
     Dates: start: 20220827
  10. FLUOROURACIL\LEUCOVORIN CALCIUM\OXALIPLATIN [Concomitant]
     Active Substance: FLUOROURACIL\LEUCOVORIN CALCIUM\OXALIPLATIN
  11. IRINOTECAN [Concomitant]
     Active Substance: IRINOTECAN
     Indication: Colon cancer
     Dosage: 250 MILLIGRAM, DAY 1 AND DAY 15
     Dates: start: 20230214

REACTIONS (5)
  - Colon cancer recurrent [Unknown]
  - Hypertension [Unknown]
  - Haemorrhage [Unknown]
  - Disorientation [Not Recovered/Not Resolved]
  - Amnesia [Not Recovered/Not Resolved]

NARRATIVE: CASE EVENT DATE: 20220823
